FAERS Safety Report 17602548 (Version 2)
Quarter: 2020Q4

REPORT INFORMATION
  Report Type: Spontaneous
  Country: JP (occurrence: JP)
  Receive Date: 20200331
  Receipt Date: 20201221
  Transmission Date: 20210113
  Serious: Yes (Hospitalization)
  Sender: FDA-Public Use
  Company Number: JP-ROCHE-2574008

PATIENT
  Age: 78 Year
  Sex: Male

DRUGS (1)
  1. XOLAIR [Suspect]
     Active Substance: OMALIZUMAB
     Indication: ASTHMA
     Route: 058
     Dates: start: 20191128

REACTIONS (1)
  - Cholangitis [Recovering/Resolving]

NARRATIVE: CASE EVENT DATE: 20200312
